FAERS Safety Report 8009448-X (Version None)
Quarter: 2011Q4

REPORT INFORMATION
  Report Type: 
  Country: None (occurrence: None)
  Receive Date: 20111227
  Receipt Date: 20111221
  Transmission Date: 20120403
  Serious: Yes (Other)
  Sender: FDA-Public Use
  Company Number: NO-SANOFI-AVENTIS-2011SA084232

PATIENT

DRUGS (2)
  1. OXALIPLATIN [Suspect]
     Indication: COLORECTAL CANCER
     Route: 042
  2. FLUOROURACIL [Concomitant]
     Indication: COLORECTAL CANCER
     Route: 065

REACTIONS (2)
  - RENAL FAILURE [None]
  - DISSEMINATED INTRAVASCULAR COAGULATION [None]
